FAERS Safety Report 8764953 (Version 2)
Quarter: 2013Q1

REPORT INFORMATION
  Report Type: Report from Study
  Country: IT (occurrence: IT)
  Receive Date: 20120903
  Receipt Date: 20130319
  Transmission Date: 20140127
  Serious: Yes (Other)
  Sender: FDA-Public Use
  Company Number: IT-BRISTOL-MYERS SQUIBB COMPANY-16892424

PATIENT
  Age: 64 Year
  Sex: Female
  Weight: 73 kg

DRUGS (8)
  1. CARBOPLATIN [Suspect]
     Indication: OVARIAN CANCER
     Dosage: 1 DF: 5AUC,LAST DOSE ON 16MAY12,6 CYCLES IN TOTAL
     Route: 042
     Dates: start: 20111227, end: 20120628
  2. PACLITAXEL [Suspect]
     Indication: OVARIAN CANCER
     Dosage: LAST DOSE ON 16MAY12, 6 CYCLES IN TOTAL
     Route: 042
     Dates: start: 20111227
  3. BEVACIZUMAB [Suspect]
     Indication: OVARIAN CANCER
     Dosage: LAST DOSE ON 14JUN12, 6 CYCLES IN TOTAL
     Route: 042
     Dates: start: 20111227, end: 20120620
  4. NORVASC [Concomitant]
     Dates: start: 20050715
  5. BISOPROLOL [Concomitant]
  6. ARANESP [Concomitant]
     Dates: start: 2012
  7. ANTRA [Concomitant]
     Dates: start: 20111021
  8. SOLDESAM [Concomitant]
     Dosage: 1 DF: 36 GTT
     Dates: start: 20111227

REACTIONS (1)
  - Cerebral ischaemia [Not Recovered/Not Resolved]
